FAERS Safety Report 16122314 (Version 1)
Quarter: 2019Q1

REPORT INFORMATION
  Report Type: Spontaneous
  Country: US (occurrence: US)
  Receive Date: 20190222
  Receipt Date: 20190222
  Transmission Date: 20190418
  Serious: Yes (Hospitalization)
  Sender: FDA-Public Use
  Company Number: None

PATIENT
  Age: 70 Year
  Sex: Male
  Weight: 68 kg

DRUGS (2)
  1. NIVOLUMAB [Suspect]
     Active Substance: NIVOLUMAB
     Dosage: ?          OTHER FREQUENCY:ONE DOSE;?
     Route: 042
     Dates: start: 20130130
  2. LIRILUMAB [Suspect]
     Active Substance: LIRILUMAB
     Dosage: ?          OTHER FREQUENCY:ONE DOSE;?
     Route: 042

REACTIONS (3)
  - Respiratory disorder [None]
  - Secretion discharge [None]
  - Respiratory distress [None]

NARRATIVE: CASE EVENT DATE: 20190221
